FAERS Safety Report 21463943 (Version 1)
Quarter: 2022Q4

REPORT INFORMATION
  Report Type: Spontaneous
  Country: US (occurrence: US)
  Receive Date: 20221017
  Receipt Date: 20221017
  Transmission Date: 20230112
  Serious: Yes (Hospitalization)
  Sender: FDA-Public Use
  Company Number: US-JNJFOC-20221022593

PATIENT
  Sex: Female
  Weight: 37 kg

DRUGS (1)
  1. XARELTO [Suspect]
     Active Substance: RIVAROXABAN
     Indication: Hepatic vein thrombosis
     Route: 048

REACTIONS (2)
  - Failure to thrive [Unknown]
  - Off label use [Unknown]
